FAERS Safety Report 9095932 (Version 1)
Quarter: 2013Q1

REPORT INFORMATION
  Report Type: Spontaneous
  Country: US (occurrence: US)
  Receive Date: 20130219
  Receipt Date: 20130219
  Transmission Date: 20140127
  Serious: Yes (Other)
  Sender: FDA-Public Use
  Company Number: US-JNJFOC-2006056874

PATIENT
  Sex: Female
  Weight: 55.34 kg

DRUGS (21)
  1. IBUPROFEN [Suspect]
     Indication: HEADACHE
     Dosage: FREQUENCY TEXT: UNKNOWN DAILY DOSE TEXT: UNKNOWN
     Route: 065
  2. IBUPROFEN [Suspect]
     Indication: SYSTEMIC LUPUS ERYTHEMATOSUS
     Dosage: FREQUENCY TEXT: UNKNOWN DAILY DOSE TEXT: UNKNOWN
     Route: 065
  3. IBUPROFEN [Suspect]
     Indication: PAIN
     Dosage: FREQUENCY TEXT: UNKNOWN DAILY DOSE TEXT: UNKNOWN
     Route: 065
  4. PREDNISONE [Interacting]
     Indication: SYSTEMIC LUPUS ERYTHEMATOSUS
     Dosage: FREQUENCY TEXT: UNKNOWN DAILY DOSE TEXT: UNKNOWN
     Route: 065
  5. DETROL  LA [Interacting]
     Indication: POLLAKIURIA
     Dosage: DAILY DOSE QTY: 4 MG
     Route: 065
     Dates: end: 200604
  6. DETROL  LA [Interacting]
     Indication: MUSCLE SPASMS
     Dosage: DAILY DOSE QTY: 4 MG
     Route: 065
     Dates: end: 200604
  7. DETROL  LA [Interacting]
     Indication: URINARY INCONTINENCE
     Dosage: DAILY DOSE QTY: 4 MG
     Route: 065
     Dates: end: 200604
  8. SYNTHROID [Interacting]
     Indication: THYROID DISORDER
     Dosage: FREQUENCY TEXT: UNKNOWN DAILY DOSE TEXT: UNKNOWN
     Route: 065
  9. PREMARIN [Interacting]
     Indication: HORMONE REPLACEMENT THERAPY
     Dosage: FREQUENCY TEXT: UNKNOWN DAILY DOSE TEXT: UNKNOWN
     Route: 065
  10. MELATONIN [Interacting]
     Indication: SLEEP DISORDER
     Dosage: FREQUENCY TEXT: UNKNOWN DAILY DOSE TEXT: UNKNOWN
     Route: 065
  11. ALLEGRA [Concomitant]
     Route: 065
  12. DEPAKOTE - SLOW RELEASE [Concomitant]
     Route: 065
  13. NEXIUM [Concomitant]
     Route: 065
  14. FOSAMAX [Concomitant]
     Route: 065
  15. TYLENOL [Concomitant]
     Route: 065
  16. PROVIGIL [Concomitant]
     Route: 065
  17. ADVAIR [Concomitant]
     Route: 065
  18. SINGULAIR [Concomitant]
     Route: 065
  19. MAXALT/RIZATRIPTAN BENZOATE [Concomitant]
     Route: 065
  20. PROVENTIL INHALER [Concomitant]
     Route: 065
  21. PLAQUENIL [Concomitant]
     Route: 065

REACTIONS (14)
  - Central nervous system lesion [Unknown]
  - Multiple sclerosis [Unknown]
  - Neuritis [Unknown]
  - Neuropathy peripheral [Unknown]
  - Joint injury [Recovering/Resolving]
  - Fall [Recovered/Resolved with Sequelae]
  - Dizziness [Unknown]
  - Bedridden [Unknown]
  - Vomiting [Unknown]
  - Cystitis [Not Recovered/Not Resolved]
  - Pain [Not Recovered/Not Resolved]
  - Muscle spasms [Not Recovered/Not Resolved]
  - Micturition urgency [Not Recovered/Not Resolved]
  - Drug interaction [Unknown]
